FAERS Safety Report 18196179 (Version 2)
Quarter: 2020Q3

REPORT INFORMATION
  Report Type: Report from Study
  Country: TH (occurrence: TH)
  Receive Date: 20200825
  Receipt Date: 20200911
  Transmission Date: 20201103
  Serious: Yes (Hospitalization)
  Sender: FDA-Public Use
  Company Number: TH-SEATTLE GENETICS-2020SGN03719

PATIENT
  Age: 60 Year
  Sex: Male
  Weight: 55 kg

DRUGS (4)
  1. L?ASPARAGINASE [Suspect]
     Active Substance: ASPARAGINASE
     Indication: T-CELL LYMPHOMA
     Dosage: UNK
     Route: 030
     Dates: start: 20200703, end: 20200729
  2. DEXAMETHASONE. [Suspect]
     Active Substance: DEXAMETHASONE
     Indication: T-CELL LYMPHOMA
     Dosage: 40 MILLIGRAM
     Route: 048
     Dates: start: 20200630, end: 20200728
  3. BRENTUXIMAB VEDOTIN?MPI [Suspect]
     Active Substance: BRENTUXIMAB VEDOTIN
     Indication: T-CELL LYMPHOMA
     Dosage: 1.8 MILLIGRAM/SQ. METER
     Route: 042
     Dates: start: 20200629
  4. METHOTREXATE. [Suspect]
     Active Substance: METHOTREXATE
     Indication: T-CELL LYMPHOMA
     Dosage: 1500 MILLIGRAM/SQ. METER
     Route: 042
     Dates: start: 20200630, end: 20200728

REACTIONS (2)
  - Delirium [Recovered/Resolved]
  - Gouty arthritis [Recovered/Resolved]

NARRATIVE: CASE EVENT DATE: 20200728
